FAERS Safety Report 7998395-5 (Version None)
Quarter: 2011Q4

REPORT INFORMATION
  Report Type: 
  Country: None (occurrence: None)
  Receive Date: 20111221
  Receipt Date: 20110920
  Transmission Date: 20120403
  Serious: No
  Sender: FDA-Public Use
  Company Number: US-GLAXOSMITHKLINE-A0945298A

PATIENT
  Age: 69 Year
  Sex: Female

DRUGS (2)
  1. LOVAZA [Suspect]
     Dosage: 2G TWICE PER DAY
     Route: 048
  2. UNKNOWN [Concomitant]

REACTIONS (3)
  - ABDOMINAL DISCOMFORT [None]
  - DIARRHOEA [None]
  - PRODUCT QUALITY ISSUE [None]
